FAERS Safety Report 18187563 (Version 3)
Quarter: 2021Q2

REPORT INFORMATION
  Report Type: Spontaneous
  Country: US (occurrence: US)
  Receive Date: 20200824
  Receipt Date: 20210408
  Transmission Date: 20210717
  Serious: Yes (Hospitalization, Other)
  Sender: FDA-Public Use
  Company Number: US-PFIZER INC-2020324796

PATIENT
  Age: 93 Year
  Sex: Male
  Weight: 45.36 kg

DRUGS (1)
  1. VYNDAMAX [Suspect]
     Active Substance: TAFAMIDIS
     Indication: CARDIAC DISORDER
     Dosage: 61 MG

REACTIONS (4)
  - Blood urine present [Unknown]
  - Urinary retention [Unknown]
  - Urinary bladder haemorrhage [Unknown]
  - Off label use [Unknown]
